FAERS Safety Report 7013329-8 (Version None)
Quarter: 2010Q3

REPORT INFORMATION
  Report Type: 
  Country: None (occurrence: None)
  Receive Date: 20100924
  Receipt Date: 20100915
  Transmission Date: 20110219
  Serious: Yes (Other)
  Sender: FDA-Public Use
  Company Number: PHHY2010DE16541

PATIENT
  Sex: Female
  Weight: 17 kg

DRUGS (1)
  1. FORADIL [Suspect]
     Indication: ASTHMA
     Dosage: 2 X 12UG
     Dates: start: 20100315, end: 20100315

REACTIONS (3)
  - HALLUCINATION [None]
  - PYREXIA [None]
  - VIRAL INFECTION [None]
